FAERS Safety Report 13858679 (Version 1)
Quarter: 2017Q3

REPORT INFORMATION
  Report Type: Spontaneous
  Country: US (occurrence: US)
  Receive Date: 20170811
  Receipt Date: 20170811
  Transmission Date: 20171127
  Serious: No
  Sender: FDA-Public Use
  Company Number: US-PERRIGO-16US019528

PATIENT
  Age: 27 Year
  Sex: Female
  Weight: 53.97 kg

DRUGS (2)
  1. LORATADINE. [Suspect]
     Active Substance: LORATADINE
     Indication: WRONG DRUG ADMINISTERED
     Dosage: 10 MG, PRN
     Route: 048
     Dates: start: 2011
  2. LORATADINE. [Suspect]
     Active Substance: LORATADINE
     Dosage: APPROXIMATELY 60 MG, SINGLE
     Route: 048
     Dates: start: 20160826, end: 20160826

REACTIONS (3)
  - Expired product administered [Recovered/Resolved]
  - Wrong drug administered [Recovered/Resolved]
  - Accidental overdose [Recovered/Resolved]

NARRATIVE: CASE EVENT DATE: 20150701
